FAERS Safety Report 17692620 (Version 3)
Quarter: 2020Q4

REPORT INFORMATION
  Report Type: Other
  Country: US (occurrence: US)
  Receive Date: 20200422
  Receipt Date: 20201019
  Transmission Date: 20210113
  Serious: Yes (Other)
  Sender: FDA-Public Use
  Company Number: US-ROCHE-2582791

PATIENT
  Age: 42 Year
  Sex: Female
  Weight: 81.72 kg

DRUGS (6)
  1. OCREVUS [Suspect]
     Active Substance: OCRELIZUMAB
     Indication: RELAPSING-REMITTING MULTIPLE SCLEROSIS
     Dosage: ONGOING : YES
     Route: 042
     Dates: start: 201905
  2. OCREVUS [Suspect]
     Active Substance: OCRELIZUMAB
     Dosage: ONGOING : NO
     Route: 042
     Dates: start: 201905, end: 20191031
  3. OCREVUS [Suspect]
     Active Substance: OCRELIZUMAB
     Indication: MULTIPLE SCLEROSIS
     Dosage: FIRST FULL DOSE
     Route: 042
     Dates: start: 20191031
  4. IVIGLOB EX [Concomitant]
     Active Substance: HUMAN IMMUNOGLOBULIN G
     Dates: start: 20191201
  5. BACLOFEN. [Concomitant]
     Active Substance: BACLOFEN
     Indication: MULTIPLE SCLEROSIS
  6. LYRICA [Concomitant]
     Active Substance: PREGABALIN
     Indication: MULTIPLE SCLEROSIS

REACTIONS (9)
  - Fall [Unknown]
  - Balance disorder [Not Recovered/Not Resolved]
  - Muscle spasms [Unknown]
  - Multiple sclerosis relapse [Unknown]
  - JC polyomavirus test positive [Unknown]
  - Gait disturbance [Not Recovered/Not Resolved]
  - Back pain [Recovered/Resolved]
  - Walking aid user [Not Recovered/Not Resolved]
  - Joint stiffness [Not Recovered/Not Resolved]

NARRATIVE: CASE EVENT DATE: 201909
